FAERS Safety Report 8244304-3 (Version None)
Quarter: 2012Q1

REPORT INFORMATION
  Report Type: 
  Country: None (occurrence: None)
  Receive Date: 20120309
  Receipt Date: 20100203
  Transmission Date: 20120608
  Serious: Yes (Other)
  Sender: FDA-Public Use
  Company Number: PHEH2010US01925

PATIENT
  Age: 32 Year
  Sex: Female
  Weight: 62.1 kg

DRUGS (11)
  1. XANAX [Concomitant]
  2. TOPAMAX [Concomitant]
  3. PRILOSEC [Concomitant]
  4. VITAMINS (NO INGREDIENTS/SUBSTANCES) [Concomitant]
  5. ATENOLOL [Concomitant]
  6. ADDERALL 10 [Concomitant]
  7. EXTAVIA [Suspect]
     Indication: MULTIPLE SCLEROSIS
     Dosage: 0.187 MG, QOD, SUBCUTANEOUS
     Route: 058
     Dates: start: 20091230
  8. ZANAFLEX [Concomitant]
  9. ZANTAC [Concomitant]
  10. GINGER (ZINGIBER OFFICINALE RHIZOME) [Concomitant]
  11. DARVOCET-N (DEXTROPROPOXYPHENE NAPSILATE, PARACETAMOL) [Concomitant]

REACTIONS (5)
  - URTICARIA [None]
  - FEELING ABNORMAL [None]
  - DEPRESSION [None]
  - NAUSEA [None]
  - INJECTION SITE PAIN [None]
